FAERS Safety Report 6828102-0 (Version None)
Quarter: 2010Q3

REPORT INFORMATION
  Report Type: 
  Country: None (occurrence: None)
  Receive Date: 20100709
  Receipt Date: 20070129
  Transmission Date: 20110219
  Serious: No
  Sender: FDA-Public Use
  Company Number: US-PFIZER INC-2007008902

PATIENT
  Sex: Female

DRUGS (6)
  1. CHANTIX [Suspect]
     Indication: SMOKING CESSATION THERAPY
     Route: 048
     Dates: start: 20061101
  2. NEXIUM [Concomitant]
  3. LORAZEPAM [Concomitant]
  4. EFFEXOR [Concomitant]
  5. ZOCOR [Concomitant]
  6. TEMAZEPAM [Concomitant]

REACTIONS (1)
  - CONSTIPATION [None]
